FAERS Safety Report 7050438-1 (Version None)
Quarter: 2010Q4

REPORT INFORMATION
  Report Type: 
  Country: None (occurrence: None)
  Receive Date: 20101012
  Receipt Date: 20100916
  Transmission Date: 20110411
  Serious: Yes (Hospitalization)
  Sender: FDA-Public Use
  Company Number: AUR-APL-2010-02417

PATIENT
  Age: 61 Year
  Sex: Female

DRUGS (10)
  1. ATENOLOL [Suspect]
     Dosage: 100MG-DAILY
  2. GLYBURIDE [Suspect]
  3. METFORMIN [Concomitant]
  4. ONGLYZA [Suspect]
     Indication: DIABETES MELLITUS
     Dosage: 2.5 MG - ORAL
     Route: 048
     Dates: start: 20100301, end: 20100701
  5. PRAVACHOL [Suspect]
     Dosage: 20MG - DAILY
  6. STARLIX [Suspect]
     Indication: DIABETES MELLITUS
     Dosage: 120MG - TID - ORAL
     Route: 048
     Dates: end: 20100701
  7. BENICAR [Suspect]
     Dosage: 40MG - DAILY
  8. ZETIA [Suspect]
     Dosage: 10MG - DAILY
  9. MAVIK [Suspect]
     Dosage: 4MG - BID
  10. AMBIEN [Suspect]
     Dosage: 10MG - DAILY

REACTIONS (4)
  - BLOOD CREATININE INCREASED [None]
  - LUNG INFILTRATION [None]
  - PANCREATIC PSEUDOCYST [None]
  - PANCREATITIS [None]
